FAERS Safety Report 20473212 (Version 1)
Quarter: 2022Q1

REPORT INFORMATION
  Report Type: Spontaneous
  Country: US (occurrence: US)
  Receive Date: 20220215
  Receipt Date: 20220215
  Transmission Date: 20220424
  Serious: No
  Sender: FDA-Public Use
  Company Number: US-AUROBINDO-AUR-APL-2021-042825

PATIENT
  Age: 44 Year
  Sex: Female
  Weight: 54.3 kg

DRUGS (2)
  1. LORAZEPAM [Suspect]
     Active Substance: LORAZEPAM
     Indication: Anxiety
     Dosage: UNK UNK, (HALF MG ONCE A DAY BUT TWICE IF NEEDED FOR ANXIETY)
     Route: 065
  2. LORAZEPAM [Suspect]
     Active Substance: LORAZEPAM
     Indication: Insomnia

REACTIONS (3)
  - Dizziness [Recovering/Resolving]
  - Product physical issue [Unknown]
  - Product substitution issue [Unknown]
